FAERS Safety Report 4579368-1 (Version None)
Quarter: 2005Q1

REPORT INFORMATION
  Report Type: 
  Country: None (occurrence: None)
  Receive Date: 20050209
  Receipt Date: 20050125
  Transmission Date: 20050727
  Serious: Yes (Hospitalization)
  Sender: FDA-Public Use
  Company Number: 2005-00314

PATIENT
  Age: 29 Year
  Sex: Female

DRUGS (1)
  1. OXYTROL [Suspect]
     Dosage: TRANSDERMAL
     Route: 062

REACTIONS (2)
  - CONDITION AGGRAVATED [None]
  - MYASTHENIA GRAVIS [None]
